FAERS Safety Report 10034409 (Version 1)
Quarter: 2014Q1

REPORT INFORMATION
  Report Type: Spontaneous
  Country: US (occurrence: None)
  Receive Date: 20140324
  Receipt Date: 20140324
  Transmission Date: 20141002
  Serious: Yes (Other)
  Sender: FDA-Public Use
  Company Number: None

PATIENT
  Age: 44 Year
  Sex: Male

DRUGS (1)
  1. ADVIL [Suspect]
     Indication: HEADACHE
     Dosage: 2 PILLS, TAKEN BY MOUTH
     Route: 048
     Dates: start: 20140321, end: 20140321

REACTIONS (2)
  - Abdominal pain upper [None]
  - Abdominal pain [None]
